FAERS Safety Report 17392708 (Version 2)
Quarter: 2020Q1

REPORT INFORMATION
  Report Type: Report from Study
  Country: CA (occurrence: CA)
  Receive Date: 20200207
  Receipt Date: 20200224
  Transmission Date: 20200409
  Serious: Yes (Other)
  Sender: FDA-Public Use
  Company Number: CA-GLAXOSMITHKLINE-CA2020AMR016631

PATIENT
  Sex: Male

DRUGS (1)
  1. MEPOLIZUMAB [Suspect]
     Active Substance: MEPOLIZUMAB
     Indication: ASTHMA
     Dosage: 100 MG, Z
     Route: 042
     Dates: start: 20191030

REACTIONS (5)
  - Drug ineffective [Unknown]
  - Dyspnoea [Recovered/Resolved]
  - Gait disturbance [Unknown]
  - Asthma [Recovered/Resolved]
  - Respiratory distress [Recovering/Resolving]
